FAERS Safety Report 6818729-4 (Version None)
Quarter: 2010Q2

REPORT INFORMATION
  Report Type: 
  Country: None (occurrence: None)
  Receive Date: 20100630
  Receipt Date: 20100624
  Transmission Date: 20101027
  Serious: Yes (Other)
  Sender: FDA-Public Use
  Company Number: 2010MA000191

PATIENT
  Age: 60 Year
  Sex: Female

DRUGS (1)
  1. IBUPROFEN [Suspect]
     Indication: OSTEOARTHRITIS
     Dosage: 500 MG; PO
     Route: 048
     Dates: start: 20080101

REACTIONS (6)
  - BLISTER [None]
  - FACE OEDEMA [None]
  - LIP SWELLING [None]
  - NAUSEA [None]
  - OEDEMA MOUTH [None]
  - PRODUCT SUBSTITUTION ISSUE [None]
